FAERS Safety Report 9630130 (Version 3)
Quarter: 2014Q3

REPORT INFORMATION
  Report Type: Report from Study
  Country: AR (occurrence: AR)
  Receive Date: 20131017
  Receipt Date: 20140915
  Transmission Date: 20150326
  Serious: Yes (Death, Other)
  Sender: FDA-Public Use
  Company Number: PHHY2013AR116762

PATIENT
  Age: 14 Year
  Sex: Female

DRUGS (1)
  1. TOBI PODHALER [Suspect]
     Active Substance: TOBRAMYCIN
     Dosage: UNK

REACTIONS (5)
  - Haemoptysis [Recovered/Resolved]
  - Pneumonia [Recovering/Resolving]
  - Pyrexia [Unknown]
  - Respiratory arrest [Fatal]
  - Pseudomonas infection [Recovering/Resolving]

NARRATIVE: CASE EVENT DATE: 20140617
